FAERS Safety Report 8802677 (Version 2)
Quarter: 2012Q4

REPORT INFORMATION
  Report Type: 
  Country: US (occurrence: US)
  Receive Date: 20120921
  Receipt Date: 20121005
  Transmission Date: 20130627
  Serious: No
  Sender: FDA-Public Use
  Company Number: US-PFIZER INC-2012234247

PATIENT
  Age: 34 Year
  Sex: Female
  Weight: 70.3 kg

DRUGS (4)
  1. CHANTIX [Suspect]
     Indication: SMOKING CESSATION THERAPY
     Dosage: UNK
     Route: 048
     Dates: start: 201106, end: 201108
  2. SEROQUEL [Concomitant]
     Dosage: 200 mg, UNK
  3. LAMOTRIGINE [Concomitant]
     Dosage: 200 mg, UNK
  4. BUSPIRONE [Concomitant]
     Dosage: UNK

REACTIONS (1)
  - Intervertebral disc protrusion [Unknown]
